FAERS Safety Report 5114273-3 (Version None)
Quarter: 2006Q3

REPORT INFORMATION
  Report Type: 
  Country: None (occurrence: None)
  Receive Date: 20060925
  Receipt Date: 20060918
  Transmission Date: 20061208
  Serious: Yes (Death, Other)
  Sender: FDA-Public Use
  Company Number: US-BRISTOL-MYERS SQUIBB COMPANY-13514245

PATIENT
  Age: 62 Year
  Sex: Male

DRUGS (7)
  1. CISPLATIN [Suspect]
     Indication: NON-SMALL CELL LUNG CANCER
     Route: 042
  2. CARBOPLATIN [Suspect]
     Indication: NON-SMALL CELL LUNG CANCER
     Route: 042
  3. ETOPOSIDE [Suspect]
     Indication: NON-SMALL CELL LUNG CANCER
     Route: 042
  4. RADIOTHERAPY [Suspect]
     Indication: NON-SMALL CELL LUNG CANCER
  5. PACLITAXEL [Concomitant]
     Indication: NON-SMALL CELL LUNG CANCER
     Route: 042
  6. DOCETAXEL [Concomitant]
     Indication: METASTASES TO LUNG
  7. GEMCITABINE [Concomitant]
     Indication: METASTASES TO LUNG

REACTIONS (2)
  - CHRONIC MYELOMONOCYTIC LEUKAEMIA [None]
  - TREATMENT RELATED SECONDARY MALIGNANCY [None]
